FAERS Safety Report 5746612-4 (Version None)
Quarter: 2008Q2

REPORT INFORMATION
  Report Type: 
  Country: None (occurrence: None)
  Receive Date: 20080522
  Receipt Date: 20080514
  Transmission Date: 20081010
  Serious: Yes (Other)
  Sender: FDA-Public Use
  Company Number: CA-ASTRAZENECA-2008UW09964

PATIENT
  Age: 64 Year
  Sex: Female

DRUGS (6)
  1. ARIMIDEX [Suspect]
     Indication: BREAST CANCER
     Route: 048
     Dates: start: 19980101
  2. LOSEC I.V. [Concomitant]
     Indication: GASTROINTESTINAL DISORDER
     Route: 048
  3. SYNTHROID [Concomitant]
  4. CALCIUM [Concomitant]
  5. LIPITOR [Concomitant]
  6. LOZIDE [Concomitant]

REACTIONS (4)
  - BALANCE DISORDER [None]
  - DEFORMITY [None]
  - FALL [None]
  - MUSCLE SPASMS [None]
